FAERS Safety Report 21365508 (Version 3)
Quarter: 2023Q2

REPORT INFORMATION
  Report Type: Spontaneous
  Country: US (occurrence: US)
  Receive Date: 20220922
  Receipt Date: 20230607
  Transmission Date: 20230721
  Serious: No
  Sender: FDA-Public Use
  Company Number: US-PHARMAESSENTIA CORPORATION-US-2022-PEC-000662

PATIENT

DRUGS (5)
  1. BESREMI [Suspect]
     Active Substance: ROPEGINTERFERON ALFA-2B-NJFT
     Indication: Polycythaemia vera
     Dosage: 50 MCG, Q2W
     Route: 058
     Dates: start: 20220504
  2. BESREMI [Suspect]
     Active Substance: ROPEGINTERFERON ALFA-2B-NJFT
     Dosage: 250 MCG, Q2W
     Route: 058
  3. BESREMI [Suspect]
     Active Substance: ROPEGINTERFERON ALFA-2B-NJFT
     Dosage: 450 MICROGRAM
     Route: 058
  4. BESREMI [Suspect]
     Active Substance: ROPEGINTERFERON ALFA-2B-NJFT
     Dosage: 400 MICROGRAM
     Route: 058
     Dates: start: 20220928
  5. BESREMI [Suspect]
     Active Substance: ROPEGINTERFERON ALFA-2B-NJFT
     Dosage: 500 MICROGRAM, Q2W
     Route: 058

REACTIONS (21)
  - Mental status changes [Unknown]
  - Splenomegaly [Unknown]
  - Mouth ulceration [Unknown]
  - Therapeutic response delayed [Unknown]
  - Therapy partial responder [Unknown]
  - Nail bed disorder [Unknown]
  - Nail discolouration [Unknown]
  - Haematocrit increased [Not Recovered/Not Resolved]
  - Incorrect dose administered [Unknown]
  - Injection site bruising [Not Recovered/Not Resolved]
  - Injection site discharge [Unknown]
  - Liver function test increased [Unknown]
  - Injection site swelling [Unknown]
  - Anxiety [Not Recovered/Not Resolved]
  - Injection site urticaria [Unknown]
  - Visual impairment [Unknown]
  - Injection site irritation [Unknown]
  - Rash [Unknown]
  - Platelet count decreased [Not Recovered/Not Resolved]
  - Injection site erythema [Unknown]
  - Injection site alopecia [Recovering/Resolving]

NARRATIVE: CASE EVENT DATE: 20220501
